FAERS Safety Report 9386895 (Version 1)
Quarter: 2013Q3

REPORT INFORMATION
  Report Type: Spontaneous
  Country: IL (occurrence: IL)
  Receive Date: 20130708
  Receipt Date: 20130708
  Transmission Date: 20140515
  Serious: Yes (Other)
  Sender: FDA-Public Use
  Company Number: IL-ROCHE-793254

PATIENT
  Age: 58 Year
  Sex: Female

DRUGS (1)
  1. XENICAL [Suspect]
     Indication: PRODUCT USED FOR UNKNOWN INDICATION
     Route: 048

REACTIONS (4)
  - Pancreatic carcinoma [Unknown]
  - Drug effect decreased [Unknown]
  - Haemorrhoids [Not Recovered/Not Resolved]
  - Abdominal pain [Unknown]
